FAERS Safety Report 16905438 (Version 2)
Quarter: 2019Q4

REPORT INFORMATION
  Report Type: Spontaneous
  Country: US (occurrence: US)
  Receive Date: 20191010
  Receipt Date: 20191108
  Transmission Date: 20200122
  Serious: Yes (Other)
  Sender: FDA-Public Use
  Company Number: US-BRISTOL-MYERS SQUIBB COMPANY-BMS-2019-096108

PATIENT
  Sex: Male

DRUGS (1)
  1. SPRYCEL [Suspect]
     Active Substance: DASATINIB
     Indication: GASTROINTESTINAL STROMAL TUMOUR
     Dosage: 70 MILLIGRAM, QD
     Route: 048
     Dates: start: 20190422, end: 20190909

REACTIONS (3)
  - Adverse event [Unknown]
  - Intentional product use issue [Unknown]
  - Drug ineffective [Unknown]
